FAERS Safety Report 8317714-3 (Version None)
Quarter: 2012Q2

REPORT INFORMATION
  Report Type: 
  Country: None (occurrence: None)
  Receive Date: 20120427
  Receipt Date: 20120417
  Transmission Date: 20120825
  Serious: Yes (Other)
  Sender: FDA-Public Use
  Company Number: US-CELGENEUS-163-21880-11120546

PATIENT
  Sex: Female

DRUGS (6)
  1. MULTIVITAMINS W/ CALCIUM + VITAMIN D [Concomitant]
     Route: 048
  2. REVLIMID [Suspect]
     Indication: MULTIPLE MYELOMA
     Dosage: 25 MILLIGRAM
     Route: 048
     Dates: start: 20110922
  3. REVLIMID [Suspect]
     Dosage: 15 MILLIGRAM
     Route: 048
     Dates: start: 20111007, end: 20111024
  4. ACYCLOVIR [Concomitant]
     Dosage: 400 MILLIGRAM
     Route: 048
     Dates: start: 20111110
  5. DEXAMETHASONE [Concomitant]
     Dosage: 40 MILLIGRAM
     Route: 048
     Dates: start: 20110909
  6. PAXIL [Concomitant]
     Indication: SEASONAL AFFECTIVE DISORDER
     Route: 048

REACTIONS (4)
  - ARTHRALGIA [None]
  - NEUTROPHIL COUNT DECREASED [None]
  - ORAL HERPES [None]
  - HAEMOGLOBIN DECREASED [None]
